FAERS Safety Report 8712613 (Version 1)
Quarter: 2012Q4

REPORT INFORMATION
  Report Type: 
  Country: US (occurrence: US)
  Receive Date: 20120828
  Receipt Date: 20120828
  Transmission Date: 20130627
  Serious: Yes (Other)
  Sender: FDA-Public Use
  Company Number: US-JNJCP-30000120724

PATIENT
  Age: 38 Year
  Sex: Female
  Weight: 64 kg

DRUGS (2)
  1. NEUTROGENA OIL FREE ACNE WASH PINK GRAPEFRUIT FACIAL CLEANSER [Suspect]
     Indication: REMOVAL OF DIRT FROM SKIN
     Dosage: one pump, once a day
     Route: 061
     Dates: start: 20120716, end: 20120718
  2. ESTROVEN [Concomitant]
     Indication: MENOPAUSE
     Dosage: one pill daily

REACTIONS (9)
  - Application site erythema [Recovering/Resolving]
  - Application site swelling [Not Recovered/Not Resolved]
  - Application site pruritus [Not Recovered/Not Resolved]
  - Dyspnoea [Not Recovered/Not Resolved]
  - Application site pain [Recovering/Resolving]
  - Throat tightness [Not Recovered/Not Resolved]
  - Nasal congestion [Not Recovered/Not Resolved]
  - Application site reaction [Not Recovered/Not Resolved]
  - Application site dryness [Not Recovered/Not Resolved]
